FAERS Safety Report 4862196-7 (Version None)
Quarter: 2005Q4

REPORT INFORMATION
  Report Type: 
  Country: None (occurrence: None)
  Receive Date: 20051221
  Receipt Date: 20051213
  Transmission Date: 20060501
  Serious: Yes (Other)
  Sender: FDA-Public Use
  Company Number: 2005UW18894

PATIENT
  Age: 89 Year
  Sex: Female

DRUGS (4)
  1. PULMICORT [Suspect]
     Indication: ASTHMA
     Route: 055
     Dates: start: 20030101
  2. IPRATROPIUM BROMIDE [Concomitant]
  3. SALBUTAMOL [Concomitant]
  4. EYE DROPS [Concomitant]
     Indication: GLAUCOMA

REACTIONS (6)
  - CORNEAL OEDEMA [None]
  - ERYTHEMA [None]
  - GLAUCOMA [None]
  - ORAL FUNGAL INFECTION [None]
  - VISION BLURRED [None]
  - VISUAL DISTURBANCE [None]
